FAERS Safety Report 11261717 (Version 3)
Quarter: 2015Q3

REPORT INFORMATION
  Report Type: Spontaneous
  Country: US (occurrence: US)
  Receive Date: 20150710
  Receipt Date: 20150717
  Transmission Date: 20151125
  Serious: No
  Sender: FDA-Public Use
  Company Number: CHPA2015US008161

PATIENT
  Age: 77 Year
  Sex: Female

DRUGS (1)
  1. VOLTAREN [Suspect]
     Active Substance: DICLOFENAC SODIUM
     Indication: PRODUCT USED FOR UNKNOWN INDICATION
     Dosage: A LITTLE BIT, UNK
     Route: 061
     Dates: start: 2013

REACTIONS (5)
  - Musculoskeletal pain [Not Recovered/Not Resolved]
  - Drug administered at inappropriate site [Unknown]
  - Back pain [Not Recovered/Not Resolved]
  - Expired product administered [Unknown]
  - Therapeutic response unexpected [Unknown]

NARRATIVE: CASE EVENT DATE: 2014
